FAERS Safety Report 25838637 (Version 3)
Quarter: 2025Q4

REPORT INFORMATION
  Report Type: Report from Study
  Country: US (occurrence: US)
  Receive Date: 20250924
  Receipt Date: 20251113
  Transmission Date: 20260118
  Serious: Yes (Hospitalization)
  Sender: SYNDAX
  Company Number: US-SYNDAX PHARMACEUTICALS, INC.-2025US000716

PATIENT
  Age: 7 Year
  Sex: Male
  Weight: 28.095 kg

DRUGS (8)
  1. REVUFORJ [Suspect]
     Active Substance: REVUMENIB CITRATE
     Indication: Acute myeloid leukaemia
     Dosage: 100 MILLIGRAM, BID
     Route: 048
     Dates: start: 20250909, end: 20251031
  2. ALLOPURINOL [Concomitant]
     Active Substance: ALLOPURINOL
     Indication: Product used for unknown indication
     Route: 065
  3. ONDANSETRON [Concomitant]
     Active Substance: ONDANSETRON
     Indication: Product used for unknown indication
     Route: 065
  4. PENTAMIDINE [Concomitant]
     Active Substance: PENTAMIDINE
     Indication: Product used for unknown indication
     Route: 065
  5. REFRESH                            /00007001/ [Concomitant]
     Indication: Product used for unknown indication
     Route: 065
  6. SULFACETAMIDE [Concomitant]
     Active Substance: SULFACETAMIDE
     Indication: Product used for unknown indication
     Route: 065
  7. VENCLEXTA [Concomitant]
     Active Substance: VENETOCLAX
     Indication: Product used for unknown indication
     Route: 065
  8. VORICONAZOLE [Concomitant]
     Active Substance: VORICONAZOLE
     Indication: Product used for unknown indication
     Route: 065

REACTIONS (8)
  - Stem cell transplant [Recovering/Resolving]
  - Off label use [Unknown]
  - Wrong technique in product usage process [Recovered/Resolved]
  - Haemoglobin decreased [Unknown]
  - Platelet disorder [Unknown]
  - Neutrophil count abnormal [Unknown]
  - Nausea [Recovered/Resolved]
  - Vomiting [Recovered/Resolved]

NARRATIVE: CASE EVENT DATE: 20251106
